FAERS Safety Report 9962682 (Version 2)
Quarter: 2014Q1

REPORT INFORMATION
  Report Type: Spontaneous
  Country: IT (occurrence: IT)
  Receive Date: 20140305
  Receipt Date: 20140305
  Transmission Date: 20141002
  Serious: Yes (Hospitalization)
  Sender: FDA-Public Use
  Company Number: IT-SA-2013SA136355

PATIENT
  Age: 64 Year
  Sex: Female

DRUGS (4)
  1. SOLOSA [Suspect]
     Indication: DIABETES MELLITUS
     Route: 048
     Dates: start: 20120201, end: 20120521
  2. ENAPREN [Concomitant]
     Route: 048
  3. CARDIOASPIRIN [Concomitant]
     Route: 048
  4. ANTRA [Concomitant]

REACTIONS (3)
  - Hypoglycaemia [Recovered/Resolved]
  - Speech disorder [Recovered/Resolved]
  - Sopor [Recovered/Resolved]
